FAERS Safety Report 10238104 (Version 1)
Quarter: 2014Q2

REPORT INFORMATION
  Report Type: Spontaneous
  Country: US (occurrence: None)
  Receive Date: 20140613
  Receipt Date: 20140613
  Transmission Date: 20141212
  Serious: No
  Sender: FDA-Public Use
  Company Number: None

PATIENT
  Sex: Male

DRUGS (1)
  1. NEXAVAR [Suspect]
     Indication: NEOPLASM MALIGNANT
     Route: 048
     Dates: start: 201405

REACTIONS (2)
  - Abdominal pain upper [None]
  - Pain [None]
